FAERS Safety Report 6296057-6 (Version None)
Quarter: 2009Q3

REPORT INFORMATION
  Report Type: 
  Country: None (occurrence: None)
  Receive Date: 20090804
  Receipt Date: 20090729
  Transmission Date: 20100115
  Serious: Yes (Death, Hospitalization)
  Sender: FDA-Public Use
  Company Number: FR-BRISTOL-MYERS SQUIBB COMPANY-14721526

PATIENT
  Age: 83 Year
  Sex: Male
  Weight: 60 kg

DRUGS (15)
  1. COUMADIN [Suspect]
     Route: 048
     Dates: start: 20090604, end: 20090610
  2. GLUCOPHAGE [Suspect]
  3. CYCLOPHOSPHAMIDE [Suspect]
     Dosage: END OF 2008, 5 COURSES
     Dates: start: 20080101
  4. LOVENOX [Suspect]
     Route: 058
     Dates: start: 20090606, end: 20090610
  5. AMAREL [Suspect]
  6. GLUCOR [Suspect]
  7. NISISCO [Suspect]
  8. AMLOR [Suspect]
  9. HYPERIUM [Suspect]
  10. PERMIXON [Suspect]
  11. FLECAINIDE ACETATE [Suspect]
     Indication: ATRIAL FIBRILLATION
     Dosage: FLECAINE SR 100
  12. MABTHERA [Suspect]
     Dosage: END OF 2008, 5 COURSES
     Dates: start: 20080101
  13. PREVISCAN [Suspect]
     Dates: start: 20081101, end: 20090522
  14. FLUDARA [Suspect]
     Dosage: END OF 2008, 5 COURSES
     Dates: start: 20080101
  15. STABLON [Suspect]
     Dosage: DISCONTINUED FROM 29-MAY-09 TO 04-JUN-09 AND RESUMED ON 04-JUN-09 AND AGAIN STOPPED ON 06-JUN-09
     Dates: start: 20090101

REACTIONS (4)
  - CEREBRAL HAEMORRHAGE [None]
  - FEBRILE BONE MARROW APLASIA [None]
  - HAEMATOMA [None]
  - HYPONATRAEMIA [None]
